FAERS Safety Report 6473498-5 (Version None)
Quarter: 2009Q4

REPORT INFORMATION
  Report Type: 
  Country: None (occurrence: None)
  Receive Date: 20091204
  Receipt Date: 20081226
  Transmission Date: 20100525
  Serious: Yes (Death, Hospitalization)
  Sender: FDA-Public Use
  Company Number: JP-ELI_LILLY_AND_COMPANY-JP200811003871

PATIENT
  Sex: Male
  Weight: 68.4 kg

DRUGS (10)
  1. GEMZAR [Suspect]
     Indication: LUNG SQUAMOUS CELL CARCINOMA STAGE IV
  2. GEMZAR [Suspect]
     Dosage: 1670 MG, OTHER
     Route: 042
     Dates: start: 20080925, end: 20080925
  3. CISPLATIN [Concomitant]
     Indication: LUNG SQUAMOUS CELL CARCINOMA STAGE IV
     Dosage: 140 MG, OTHER
     Route: 042
     Dates: start: 20080904, end: 20080904
  4. CARBOPLATIN [Concomitant]
     Indication: LUNG SQUAMOUS CELL CARCINOMA STAGE IV
     Dosage: 375 MG, UNK
     Route: 042
     Dates: start: 20080925, end: 20080925
  5. LOXONIN [Concomitant]
     Indication: CANCER PAIN
     Dosage: 180 MG, DAILY (1/D)
     Route: 048
     Dates: start: 20080827, end: 20081014
  6. PARIET [Concomitant]
     Indication: PROPHYLAXIS AGAINST GASTROINTESTINAL ULCER
     Dosage: 10 MG, DAILY (1/D)
     Route: 048
     Dates: start: 20080828, end: 20081014
  7. NOVAMIN [Concomitant]
     Indication: NAUSEA
     Dosage: 15 MG, DAILY (1/D)
     Route: 048
     Dates: start: 20080901, end: 20081014
  8. MAGMITT [Concomitant]
     Indication: CONSTIPATION
     Dosage: 330 UNK, 3/D
     Route: 048
     Dates: start: 20080901, end: 20081014
  9. OXYCONTIN [Concomitant]
     Indication: CANCER PAIN
     Dosage: 15 MG, DAILY (1/D)
     Route: 048
     Dates: start: 20080920, end: 20081014
  10. PRIMPERAN                               /SCH/ [Concomitant]
     Indication: NAUSEA
     Dosage: 5 MG, 3/D
     Route: 048
     Dates: start: 20080921, end: 20081014

REACTIONS (6)
  - BRONCHITIS [None]
  - DECREASED APPETITE [None]
  - DERMATITIS CONTACT [None]
  - LUNG SQUAMOUS CELL CARCINOMA STAGE IV [None]
  - MALIGNANT NEOPLASM PROGRESSION [None]
  - VENA CAVA THROMBOSIS [None]
